FAERS Safety Report 15351769 (Version 2)
Quarter: 2019Q2

REPORT INFORMATION
  Report Type: Spontaneous
  Country: US (occurrence: US)
  Receive Date: 20180905
  Receipt Date: 20190624
  Transmission Date: 20190711
  Serious: No
  Sender: FDA-Public Use
  Company Number: US-SA-2018SA247441

PATIENT
  Age: 66 Year
  Sex: Female

DRUGS (1)
  1. AUBAGIO [Suspect]
     Active Substance: TERIFLUNOMIDE
     Indication: MULTIPLE SCLEROSIS
     Dosage: 14 MG, QD
     Route: 048
     Dates: start: 20180124

REACTIONS (6)
  - Sciatica [Unknown]
  - Osteoporosis [Unknown]
  - Fatigue [Unknown]
  - Fracture [Unknown]
  - Depression [Unknown]
  - Temperature intolerance [Unknown]
